FAERS Safety Report 9198821 (Version 1)
Quarter: 2013Q1

REPORT INFORMATION
  Report Type: Spontaneous
  Country: SG (occurrence: SG)
  Receive Date: 20130329
  Receipt Date: 20130329
  Transmission Date: 20140127
  Serious: Yes (Death, Hospitalization)
  Sender: FDA-Public Use
  Company Number: SG-009507513-1303SGP012344

PATIENT
  Age: 75 Year
  Sex: Male
  Weight: 37 kg

DRUGS (11)
  1. JANUVIA [Suspect]
     Indication: DIABETES MELLITUS
     Dosage: 100 MG, QD
     Route: 048
     Dates: start: 20120827, end: 20121104
  2. ASPIRIN [Concomitant]
     Dosage: 100 MG, QD
     Route: 048
  3. CALCIUM CARBONATE (+) VITAMIN D (UNSPECIFIED) [Concomitant]
     Dosage: 1 DF, QD
     Route: 048
  4. GABAPENTIN [Concomitant]
     Dosage: 300 MG, QD
     Route: 048
  5. MOTILIUM [Concomitant]
     Dosage: 10 MG, UNK
     Route: 048
  6. NEUROBION [Concomitant]
     Dosage: 1 DF, TID
     Route: 048
  7. OMEPRAZOLE [Concomitant]
     Dosage: 40 MG, BID
     Route: 048
  8. SIMVASTATIN [Concomitant]
     Dosage: 30 MG, QD
     Route: 048
  9. TOLBUTAMIDE [Concomitant]
     Dosage: 1 G, TID
     Route: 048
  10. GLUCOSAMINE [Concomitant]
     Dosage: 2 DF, TID
     Route: 048
  11. METFORMIN [Concomitant]
     Dosage: 10 MG, UNK
     Route: 048

REACTIONS (1)
  - Pancreatic carcinoma [Fatal]
